FAERS Safety Report 5525879-1 (Version None)
Quarter: 2007Q4

REPORT INFORMATION
  Report Type: 
  Country: None (occurrence: None)
  Receive Date: 20071126
  Receipt Date: 20071112
  Transmission Date: 20080405
  Serious: Yes (Hospitalization)
  Sender: FDA-Public Use
  Company Number: DE-ASTRAZENECA-2007PK02380

PATIENT
  Age: 55 Year
  Sex: Male

DRUGS (13)
  1. SEROQUEL [Suspect]
     Route: 048
     Dates: start: 20070430, end: 20070502
  2. SEROQUEL [Suspect]
     Route: 048
     Dates: start: 20070503, end: 20070503
  3. SEROQUEL [Suspect]
     Route: 048
     Dates: start: 20070504, end: 20070504
  4. SEROQUEL [Suspect]
     Route: 048
     Dates: start: 20070505, end: 20070506
  5. SEROQUEL [Suspect]
     Route: 048
     Dates: start: 20070507, end: 20070508
  6. SEROQUEL [Suspect]
     Route: 048
     Dates: start: 20070509, end: 20070522
  7. CIPRAMIL [Concomitant]
     Route: 048
     Dates: start: 20070323, end: 20070507
  8. CIPRAMIL [Concomitant]
     Route: 048
     Dates: start: 20070508, end: 20070508
  9. DELIX PLUS [Concomitant]
     Dosage: 5 + 25 MG/DAY
     Route: 048
  10. GLYBURIDE [Concomitant]
     Route: 048
  11. AMLODIPINE [Concomitant]
     Route: 048
  12. ASPIRIN [Concomitant]
     Route: 048
  13. NOVODIGAL [Concomitant]
     Route: 048

REACTIONS (1)
  - CEREBROVASCULAR DISORDER [None]
